FAERS Safety Report 10158193 (Version 1)
Quarter: 2014Q2

REPORT INFORMATION
  Report Type: Spontaneous
  Country: NL (occurrence: NL)
  Receive Date: 20140507
  Receipt Date: 20140507
  Transmission Date: 20141212
  Serious: Yes (Life-Threatening, Other)
  Sender: FDA-Public Use
  Company Number: NL-ACTAVIS-2014-09319

PATIENT
  Age: 62 Year
  Sex: Female

DRUGS (3)
  1. FLUOXETINE (UNKNOWN) [Suspect]
     Indication: PRODUCT USED FOR UNKNOWN INDICATION
     Dosage: 20 MG DAILY OD, }2 YEARS
     Route: 065
  2. CODEINE (UNKNOWN) [Interacting]
     Indication: PRODUCT USED FOR UNKNOWN INDICATION
     Dosage: 15 MG, DAILY
     Route: 065
  3. TRAMADOL (UNKNOWN) [Interacting]
     Dosage: 100 MG, DAILY
     Route: 065

REACTIONS (5)
  - Torsade de pointes [Recovered/Resolved]
  - Electrocardiogram QT prolonged [Recovered/Resolved]
  - Syncope [Unknown]
  - Ventricular fibrillation [Unknown]
  - Drug interaction [Recovered/Resolved]
